FAERS Safety Report 6060788-3 (Version None)
Quarter: 2009Q1

REPORT INFORMATION
  Report Type: 
  Country: None (occurrence: None)
  Receive Date: 20090202
  Receipt Date: 20090121
  Transmission Date: 20090719
  Serious: Yes (Other)
  Sender: FDA-Public Use
  Company Number: PHEH2008US09801

PATIENT
  Sex: Female

DRUGS (3)
  1. ZOMETA [Suspect]
     Indication: METASTASES TO BONE
     Dosage: 4 MG MONTLY
     Dates: start: 20050824, end: 20070118
  2. DEXAMETHASONE [Concomitant]
     Dosage: UNK
     Dates: start: 20050713, end: 20070201
  3. ANTINEOPLASTIC AGENTS [Concomitant]
     Dosage: UNK
     Dates: start: 20050713, end: 20070201

REACTIONS (1)
  - OSTEONECROSIS [None]
